FAERS Safety Report 25335512 (Version 1)
Quarter: 2025Q2

REPORT INFORMATION
  Report Type: Spontaneous
  Country: AT (occurrence: AT)
  Receive Date: 20250520
  Receipt Date: 20250520
  Transmission Date: 20250717
  Serious: Yes (Other)
  Sender: NOVARTIS
  Company Number: AT-002147023-NVSC2025AT079774

PATIENT
  Age: 65 Year
  Sex: Female

DRUGS (4)
  1. KISQALI [Suspect]
     Active Substance: RIBOCICLIB SUCCINATE
     Indication: Invasive lobular breast carcinoma
     Route: 065
     Dates: start: 202408
  2. KISQALI [Suspect]
     Active Substance: RIBOCICLIB SUCCINATE
     Route: 065
     Dates: start: 202411
  3. KISQALI [Suspect]
     Active Substance: RIBOCICLIB SUCCINATE
     Route: 065
     Dates: end: 202501
  4. KISQALI [Suspect]
     Active Substance: RIBOCICLIB SUCCINATE
     Route: 065
     Dates: start: 202503

REACTIONS (4)
  - Neutropenia [Not Recovered/Not Resolved]
  - Leukopenia [Not Recovered/Not Resolved]
  - Hepatotoxicity [Recovered/Resolved]
  - COVID-19 [Recovered/Resolved]

NARRATIVE: CASE EVENT DATE: 20241001
